FAERS Safety Report 6851210-5 (Version None)
Quarter: 2010Q3

REPORT INFORMATION
  Report Type: 
  Country: None (occurrence: None)
  Receive Date: 20100716
  Receipt Date: 20100709
  Transmission Date: 20110219
  Serious: Yes (Hospitalization, Other)
  Sender: FDA-Public Use
  Company Number: US-AMGEN-QUU420752

PATIENT
  Sex: Male
  Weight: 86.3 kg

DRUGS (15)
  1. NPLATE [Suspect]
     Indication: IDIOPATHIC THROMBOCYTOPENIC PURPURA
     Route: 058
     Dates: start: 20100414
  2. PLATELETS [Concomitant]
     Indication: IDIOPATHIC THROMBOCYTOPENIC PURPURA
     Route: 042
  3. RITUXIMAB [Concomitant]
     Indication: IDIOPATHIC THROMBOCYTOPENIC PURPURA
     Dates: start: 20081125
  4. NEURONTIN [Concomitant]
  5. GLUCOTROL [Concomitant]
  6. MULTI-VITAMINS [Concomitant]
  7. SYNTHROID [Concomitant]
  8. PRILOSEC [Concomitant]
  9. ELAVIL [Concomitant]
  10. LOPRESSOR [Concomitant]
  11. UNSPECIFIED MEDICATION [Concomitant]
  12. GLIPIZIDE [Concomitant]
  13. HYDROCORTISONE [Concomitant]
  14. MELATONIN [Concomitant]
  15. AMBIEN [Concomitant]

REACTIONS (5)
  - CHEST DISCOMFORT [None]
  - CONFUSIONAL STATE [None]
  - EMPYEMA [None]
  - PLEURAL EFFUSION [None]
  - RESPIRATORY FAILURE [None]
